FAERS Safety Report 23841224 (Version 1)
Quarter: 2024Q2

REPORT INFORMATION
  Report Type: Spontaneous
  Country: NL (occurrence: NL)
  Receive Date: 20240510
  Receipt Date: 20240510
  Transmission Date: 20240716
  Serious: Yes (Life-Threatening)
  Sender: FDA-Public Use
  Company Number: None

PATIENT
  Age: 55 Year
  Sex: Female
  Weight: 96 kg

DRUGS (11)
  1. NAPROXEN [Suspect]
     Active Substance: NAPROXEN
     Indication: Pain
     Dosage: 500 MILLIGRAM, QD (IN THE EVENING 1 TABLET)
     Route: 065
     Dates: start: 20240321, end: 20240415
  2. Insulin isophane nos [Concomitant]
     Dosage: 100 IE/ML (UNITS PER MILLILITER)
     Route: 065
  3. ETANERCEPT [Concomitant]
     Active Substance: ETANERCEPT
     Dosage: 50 MG/ML (MILLIGRAM PER MILLILITER)
     Route: 065
  4. TRELEGY ELLIPTA [Concomitant]
     Active Substance: FLUTICASONE FUROATE\UMECLIDINIUM BROMIDE\VILANTEROL TRIFENATATE
     Dosage: ELLIPTA
     Route: 065
  5. MIRTAZAPINE [Concomitant]
     Active Substance: MIRTAZAPINE
     Dosage: 15 MG (MILLIGRAM)
     Route: 065
  6. AMLODIPINE [Concomitant]
     Active Substance: AMLODIPINE BESYLATE
     Dosage: 5 MG (MILLIGRAM)
     Route: 065
  7. ATORVASTATIN [Concomitant]
     Active Substance: ATORVASTATIN
     Dosage: 10 MG (MILLIGRAM)
     Route: 065
  8. INSULIN ASPART [Concomitant]
     Active Substance: INSULIN ASPART
     Dosage: 100 UNITS/ML (UNITS PER MILLILITER)
     Route: 065
  9. METFORMIN HYDROCHLORIDE [Concomitant]
     Active Substance: METFORMIN HYDROCHLORIDE
     Dosage: 500 MG (MILLIGRAM)
     Route: 065
  10. ALBUTEROL [Concomitant]
     Active Substance: ALBUTEROL
     Dosage: AEROSOL, 100 ?G/DOSE (MICROGRAM PER DOSE)
     Route: 065
  11. OMEPRAZOLE [Concomitant]
     Active Substance: DONEPEZIL HYDROCHLORIDE\OMEPRAZOLE\OMEPRAZOLE MAGNESIUM
     Dosage: 20 MG (MILLIGRAM)
     Route: 065

REACTIONS (5)
  - Choking [Recovered/Resolved]
  - Foreign body in throat [Recovered/Resolved]
  - Product size issue [Recovered/Resolved]
  - Product complaint [Recovered/Resolved]
  - Product coating issue [Recovered/Resolved]
